FAERS Safety Report 7417056-4 (Version None)
Quarter: 2011Q2

REPORT INFORMATION
  Report Type: 
  Country: None (occurrence: None)
  Receive Date: 20110415
  Receipt Date: 20090716
  Transmission Date: 20111010
  Serious: Yes (Other)
  Sender: FDA-Public Use
  Company Number: US-BAYER-200926323NA

PATIENT
  Age: 74 Year
  Sex: Female
  Weight: 69 kg

DRUGS (21)
  1. TRASYLOL [Suspect]
     Dosage: 50 CC/H
     Route: 042
     Dates: start: 20030624, end: 20030624
  2. ALBUMIN (HUMAN) [Concomitant]
     Dosage: UNK
     Route: 042
     Dates: start: 20030625
  3. LIDOCAINE [Concomitant]
     Dosage: UNK
     Dates: start: 20030625
  4. HUMULIN R [Concomitant]
     Dosage: 5 U, UNK
     Route: 042
     Dates: start: 20030625
  5. PRIMACOR [Concomitant]
     Dosage: UNK
     Route: 042
     Dates: start: 20030625
  6. SEVOFLURANE [Concomitant]
     Dosage: UNK
     Dates: start: 20030625
  7. LASIX [Concomitant]
     Dosage: UNK
     Route: 042
     Dates: start: 20030625
  8. TRASYLOL [Suspect]
     Indication: MITRAL VALVE REPLACEMENT
     Dosage: 1 ML, INITIAL DOSE
     Route: 042
     Dates: start: 20030624, end: 20030624
  9. TRASYLOL [Suspect]
     Indication: TRICUSPID VALVE REPLACEMENT
     Dosage: 200 ML, LOADING DOSE
     Route: 042
     Dates: start: 20030624, end: 20030624
  10. DOPAMINE HCL [Concomitant]
     Dosage: UNK
     Route: 042
     Dates: start: 20030625
  11. VANCOMYCIN [Concomitant]
     Dosage: 1 G, UNK
     Route: 042
     Dates: start: 20030625
  12. AMIODARONE [Concomitant]
     Dosage: 0.5MG/MIN UNK, UNK
     Route: 042
     Dates: start: 20030625
  13. CONTRAST MEDIA [Concomitant]
     Indication: CATHETERISATION CARDIAC
     Dosage: UNK
     Dates: start: 20030624
  14. TOPROL-XL [Concomitant]
     Dosage: 50 MG, UNK
     Route: 048
     Dates: start: 20030522
  15. PROTAMINE SULFATE [Concomitant]
     Dosage: UNK
     Route: 042
     Dates: start: 20030625
  16. PLASMALYTE [GLUCOSE,POTASSIUM CHLORIDE] [Concomitant]
     Dosage: UNK
     Route: 042
     Dates: start: 20030625
  17. LEVOPHED [Concomitant]
     Dosage: UNK
     Route: 042
     Dates: start: 20030625
  18. CEFAZOLIN [Concomitant]
     Dosage: 2 G, UNK
     Route: 042
     Dates: start: 20030625
  19. VERSED [Concomitant]
     Dosage: UNK
     Route: 042
     Dates: start: 20030625
  20. COUMADIN [Concomitant]
     Dosage: 5 MG, UNK
     Route: 048
     Dates: start: 20030522
  21. HEPARIN [Concomitant]
     Dosage: UNK
     Route: 042
     Dates: start: 20030625

REACTIONS (9)
  - STRESS [None]
  - RENAL INJURY [None]
  - RENAL FAILURE [None]
  - FEAR [None]
  - EMOTIONAL DISTRESS [None]
  - ANXIETY [None]
  - PAIN [None]
  - RENAL IMPAIRMENT [None]
  - UNEVALUABLE EVENT [None]
